FAERS Safety Report 8620505-7 (Version None)
Quarter: 2012Q3

REPORT INFORMATION
  Report Type: 
  Country: None (occurrence: None)
  Receive Date: 20120824
  Receipt Date: 20120817
  Transmission Date: 20120928
  Serious: Yes (Death, Hospitalization)
  Sender: FDA-Public Use
  Company Number: US-CELGENEUS-163-21880-12063217

PATIENT
  Sex: Female

DRUGS (6)
  1. ASA/CODEINE [Concomitant]
     Route: 065
  2. LEVOTHYROXINE SODIUM [Concomitant]
     Route: 065
  3. REVLIMID [Suspect]
     Indication: MULTIPLE MYELOMA
     Dosage: 10 MILLIGRAM
     Route: 048
     Dates: start: 20100325, end: 20100501
  4. METOPROLOL TARTRATE [Concomitant]
     Route: 065
  5. REVLIMID [Suspect]
     Dosage: 5 MILLIGRAM
     Route: 048
     Dates: start: 20120517, end: 20120520
  6. RED BLOOD CELLS [Concomitant]
     Route: 041

REACTIONS (3)
  - MULTIPLE MYELOMA [None]
  - CARDIO-RESPIRATORY ARREST [None]
  - CARDIAC FAILURE CONGESTIVE [None]
